FAERS Safety Report 8872335 (Version 3)
Quarter: 2012Q4

REPORT INFORMATION
  Report Type: 
  Country: IL (occurrence: IL)
  Receive Date: 20121029
  Receipt Date: 20121130
  Transmission Date: 20130627
  Serious: Yes (Hospitalization)
  Sender: FDA-Public Use
  Company Number: IL-B.I. PHARMACEUTICALS,INC./RIDGEFIELD-2012-AP-00901RI

PATIENT
  Age: 85 Year
  Sex: Male
  Weight: 86 kg

DRUGS (4)
  1. PRADAXA [Suspect]
     Indication: ATRIAL FIBRILLATION
     Dosage: 220 mg
     Route: 048
     Dates: start: 2011, end: 20121004
  2. METFORMIN [Concomitant]
  3. GLIPIZIDE [Concomitant]
  4. SIMVASIN [Concomitant]

REACTIONS (2)
  - Haematoma [Recovered/Resolved]
  - Pain in extremity [Recovered/Resolved]
